FAERS Safety Report 7240837-7 (Version None)
Quarter: 2011Q1

REPORT INFORMATION
  Report Type: 
  Country: None (occurrence: None)
  Receive Date: 20110124
  Receipt Date: 20110119
  Transmission Date: 20110831
  Serious: Yes (Life-Threatening, Hospitalization)
  Sender: FDA-Public Use
  Company Number: US-JNJFOC-20110103960

PATIENT
  Age: 34 Year
  Sex: Female

DRUGS (4)
  1. CARISOPRODOL [Suspect]
     Indication: SUICIDE ATTEMPT
     Route: 065
  2. ANGIOTENSIN RECEPTOR BLOCKER NOS [Suspect]
     Indication: SUICIDE ATTEMPT
     Route: 065
  3. ULTRAM [Suspect]
     Indication: SUICIDE ATTEMPT
     Route: 065
  4. BENZODIAZEPINE NOS [Suspect]
     Indication: SUICIDE ATTEMPT
     Route: 065

REACTIONS (5)
  - DEPRESSED LEVEL OF CONSCIOUSNESS [None]
  - TACHYCARDIA [None]
  - SUICIDE ATTEMPT [None]
  - TOXICITY TO VARIOUS AGENTS [None]
  - HYPOTENSION [None]
